FAERS Safety Report 4647153-8 (Version None)
Quarter: 2005Q2

REPORT INFORMATION
  Report Type: 
  Country: None (occurrence: None)
  Receive Date: 20050426
  Receipt Date: 20050323
  Transmission Date: 20051028
  Serious: Yes (Hospitalization)
  Sender: FDA-Public Use
  Company Number: 2005GB00625

PATIENT
  Age: 58 Year
  Sex: Male

DRUGS (3)
  1. METHOTREXATE [Suspect]
     Indication: HYPOPHARYNGEAL CANCER
     Dosage: 40 MG/M2 WEEK IV
     Route: 042
     Dates: start: 20050314, end: 20050321
  2. CREON [Concomitant]
  3. DIHYDROCODEINE [Concomitant]

REACTIONS (1)
  - GLOMERULAR FILTRATION RATE DECREASED [None]
